FAERS Safety Report 25712937 (Version 1)
Quarter: 2025Q3

REPORT INFORMATION
  Report Type: Spontaneous
  Country: JP (occurrence: JP)
  Receive Date: 20250821
  Receipt Date: 20250821
  Transmission Date: 20251020
  Serious: Yes (Death)
  Sender: TAKEDA
  Company Number: JP-TAKEDA-2025TJP008285

PATIENT
  Age: 2 Year
  Sex: Male

DRUGS (1)
  1. VPRIV [Suspect]
     Active Substance: VELAGLUCERASE ALFA
     Indication: Product used for unknown indication

REACTIONS (2)
  - Lung disorder [Fatal]
  - Gaucher^s disease [Fatal]

NARRATIVE: CASE EVENT DATE: 20250808
